FAERS Safety Report 6363769-5 (Version None)
Quarter: 2009Q3

REPORT INFORMATION
  Report Type: 
  Country: None (occurrence: None)
  Receive Date: 20090919
  Receipt Date: 20090702
  Transmission Date: 20100115
  Serious: No
  Sender: FDA-Public Use
  Company Number: US-ABBOTT-09P-163-0583630-00

PATIENT
  Sex: Female
  Weight: 61.29 kg

DRUGS (2)
  1. HUMIRA [Suspect]
     Indication: CROHN'S DISEASE
     Route: 058
     Dates: start: 20090501, end: 20090601
  2. HUMIRA [Suspect]
     Route: 058
     Dates: start: 20090601

REACTIONS (5)
  - ANXIETY [None]
  - CROHN'S DISEASE [None]
  - HEADACHE [None]
  - INJECTION SITE PRURITUS [None]
  - INJECTION SITE SWELLING [None]
